FAERS Safety Report 8900084 (Version 1)
Quarter: 2012Q4

REPORT INFORMATION
  Report Type: 
  Country: BR (occurrence: BR)
  Receive Date: 20121109
  Receipt Date: 20121109
  Transmission Date: 20130627
  Serious: Yes (Other)
  Sender: FDA-Public Use
  Company Number: PHHY2012BR102399

PATIENT
  Sex: Male
  Weight: 68 kg

DRUGS (10)
  1. ONBREZ [Suspect]
     Indication: EMPHYSEMA
     Dosage: 1 DF, QD
  2. ONBREZ [Suspect]
     Indication: PULMONARY OEDEMA
  3. CLORANA [Concomitant]
     Indication: PULMONARY OEDEMA
     Dosage: 25 mg, QD
     Route: 048
     Dates: start: 2008
  4. DIGOXINE [Concomitant]
     Indication: CARDIAC DISORDER
     Dosage: 0.5 DF, QD
     Route: 048
     Dates: start: 2008
  5. ANCORON [Concomitant]
     Indication: CARDIAC DISORDER
     Dosage: 1 DF, QD
     Route: 048
     Dates: start: 2008
  6. SIMVASTATIN [Concomitant]
     Indication: BLOOD CHOLESTEROL
     Dosage: 1 DF, QD
     Route: 048
     Dates: start: 2008
  7. PURAN T4 [Concomitant]
     Indication: THYROID DISORDER
     Dosage: 1 DF, QD
     Route: 048
  8. MAREVAN [Concomitant]
     Indication: EMBOLISM
     Dosage: 0.5 DF, per day and 1 tablet twice a month
     Route: 048
  9. ZOLOFT [Concomitant]
     Dosage: 1 DF, QD
     Route: 048
     Dates: start: 201209
  10. NORIPURUM [Concomitant]
     Indication: ANAEMIA
     Dosage: 1 DF every 6 months
     Dates: start: 201209

REACTIONS (5)
  - Dementia Alzheimer^s type [Not Recovered/Not Resolved]
  - Memory impairment [Not Recovered/Not Resolved]
  - Peripheral embolism [Recovered/Resolved]
  - Anaemia [Not Recovered/Not Resolved]
  - Off label use [Unknown]
